FAERS Safety Report 11825702 (Version 1)
Quarter: 2015Q4

REPORT INFORMATION
  Report Type: Spontaneous
  Country: US (occurrence: US)
  Receive Date: 20151211
  Receipt Date: 20151211
  Transmission Date: 20160305
  Serious: No
  Sender: FDA-Public Use
  Company Number: US-JNJFOC-20150902218

PATIENT
  Sex: Female

DRUGS (20)
  1. FUROSEMIDE. [Concomitant]
     Active Substance: FUROSEMIDE
  2. TYLENOL [Concomitant]
     Active Substance: ACETAMINOPHEN
  3. IMBRUVICA [Suspect]
     Active Substance: IBRUTINIB
     Indication: ACUTE LYMPHOCYTIC LEUKAEMIA
     Route: 048
  4. LOSARTAN. [Concomitant]
     Active Substance: LOSARTAN
  5. CULTURELLE [Concomitant]
     Active Substance: LACTOBACILLUS RHAMNOSUS
  6. REMIFEMIN [Concomitant]
  7. IMBRUVICA [Suspect]
     Active Substance: IBRUTINIB
     Indication: DIFFUSE LARGE B-CELL LYMPHOMA
     Route: 048
  8. BACKAID MAX [Concomitant]
     Active Substance: ACETAMINOPHEN\PAMABROM
  9. VITAMIN D3 [Concomitant]
     Active Substance: CHOLECALCIFEROL
  10. IMBRUVICA [Suspect]
     Active Substance: IBRUTINIB
     Indication: ACUTE LYMPHOCYTIC LEUKAEMIA
     Route: 048
     Dates: start: 20150228
  11. POTASSIUM [Concomitant]
     Active Substance: POTASSIUM
  12. VITAMIN B COMPLEX [Concomitant]
     Active Substance: CYANOCOBALAMIN\DEXPANTHENOL\NIACINAMIDE\PYRIDOXINE HYDROCHLORIDE\RIBOFLAVIN 5^-PHOSPHATE SODIUM\THIAMINE HYDROCHLORIDE\VITAMIN B COMPLEX
  13. FOLIC ACID. [Concomitant]
     Active Substance: FOLIC ACID
  14. CALCIUM [Concomitant]
     Active Substance: CALCIUM
  15. VITAMINS NOS [Concomitant]
     Active Substance: VITAMINS
  16. SYNTHROID [Concomitant]
     Active Substance: LEVOTHYROXINE SODIUM
  17. MINERALS [Concomitant]
     Active Substance: MINERALS
  18. IMBRUVICA [Suspect]
     Active Substance: IBRUTINIB
     Indication: DIFFUSE LARGE B-CELL LYMPHOMA
     Route: 048
     Dates: start: 20150228
  19. ALPRAZOLAM. [Concomitant]
     Active Substance: ALPRAZOLAM
  20. METAMUCIL [Concomitant]
     Active Substance: PLANTAGO SEED

REACTIONS (9)
  - Insomnia [Unknown]
  - Rash erythematous [Unknown]
  - Muscle spasms [Unknown]
  - Anxiety [Unknown]
  - Off label use [Unknown]
  - Rash papular [Unknown]
  - Arthralgia [Unknown]
  - Bone pain [Unknown]
  - Myalgia [Unknown]

NARRATIVE: CASE EVENT DATE: 2015
